FAERS Safety Report 4799460-6 (Version None)
Quarter: 2005Q4

REPORT INFORMATION
  Report Type: 
  Country: None (occurrence: None)
  Receive Date: 20051013
  Receipt Date: 20050930
  Transmission Date: 20060501
  Serious: Yes (Hospitalization)
  Sender: FDA-Public Use
  Company Number: 2005136974

PATIENT
  Age: 82 Year
  Sex: Female

DRUGS (5)
  1. ZOLOFT [Suspect]
     Indication: DEPRESSION
     Dosage: (1 IN 1 D), ORAL
     Route: 048
     Dates: start: 20050101
  2. TAREG (VALSARTAN) [Concomitant]
  3. ASCRIPTIN (ACETYLSALICYLIC ACID, ALUMINIUM HYDROXIDE, MAGNESIUM HYDROX [Concomitant]
  4. PANTOPAN (PANTOPRAZOLE SODIUM) [Concomitant]
  5. MADOPAR (BENSERAZIDE HYDROCHLORIDE, LEVODOPA) [Concomitant]

REACTIONS (4)
  - DYSARTHRIA [None]
  - DYSSTASIA [None]
  - IMMOBILE [None]
  - ISCHAEMIC CEREBRAL INFARCTION [None]
